APPROVED DRUG PRODUCT: ZIRGAN
Active Ingredient: GANCICLOVIR
Strength: 0.15%
Dosage Form/Route: GEL;OPHTHALMIC
Application: N022211 | Product #001
Applicant: BAUSCH AND LOMB INC
Approved: Sep 15, 2009 | RLD: Yes | RS: Yes | Type: RX